FAERS Safety Report 23957765 (Version 5)
Quarter: 2024Q3

REPORT INFORMATION
  Report Type: Spontaneous
  Country: CZ (occurrence: CZ)
  Receive Date: 20240610
  Receipt Date: 20240927
  Transmission Date: 20241016
  Serious: Yes (Life-Threatening, Other)
  Sender: MYLAN
  Company Number: CZ-MYLANLABS-2024M1051848

PATIENT
  Age: 67 Year
  Sex: Female

DRUGS (23)
  1. BENDAMUSTINE HYDROCHLORIDE [Suspect]
     Active Substance: BENDAMUSTINE HYDROCHLORIDE
     Indication: Diffuse large B-cell lymphoma
     Dosage: UNK
     Route: 065
  2. BENDAMUSTINE HYDROCHLORIDE [Suspect]
     Active Substance: BENDAMUSTINE HYDROCHLORIDE
     Indication: Splenic marginal zone lymphoma stage IV
  3. GEMCITABINE [Suspect]
     Active Substance: GEMCITABINE
     Indication: Diffuse large B-cell lymphoma
     Dosage: UNK
     Route: 065
  4. REVLIMID [Suspect]
     Active Substance: LENALIDOMIDE
     Indication: Lymphoma
     Dosage: UNK
     Route: 065
     Dates: start: 202211
  5. REVLIMID [Suspect]
     Active Substance: LENALIDOMIDE
     Dosage: UNK
     Route: 065
     Dates: start: 202303
  6. RITUXIMAB [Suspect]
     Active Substance: RITUXIMAB
     Indication: Diffuse large B-cell lymphoma
     Dosage: 6 CYCLES OF R-COP, CYCLE
     Route: 065
  7. RITUXIMAB [Suspect]
     Active Substance: RITUXIMAB
     Indication: Splenic marginal zone lymphoma stage I
     Dosage: UNK UNK, CYCLE, 5 CYCLES OF RITUXIMAB WITH BENDAMUSTINE
     Route: 065
  8. RITUXIMAB [Suspect]
     Active Substance: RITUXIMAB
     Dosage: UNK UNK, CYCLE, 2 CYCLES OF RCD
     Route: 065
     Dates: start: 202105
  9. RITUXIMAB [Suspect]
     Active Substance: RITUXIMAB
     Dosage: UNK UNK, CYCLE, 4 CYCLES R-COP
     Route: 065
     Dates: start: 202108, end: 202111
  10. RITUXIMAB [Suspect]
     Active Substance: RITUXIMAB
     Dosage: UNK UNK, CYCLE, 6 CYCLES OF RGD
     Route: 065
  11. VINCRISTINE [Suspect]
     Active Substance: VINCRISTINE
     Indication: Diffuse large B-cell lymphoma
     Dosage: UNK, PREPHASE VINCRISTINE + PREDNISONE
     Route: 065
     Dates: start: 201905
  12. VINCRISTINE [Suspect]
     Active Substance: VINCRISTINE
     Indication: Splenic marginal zone lymphoma stage IV
     Dosage: UNK UNK, CYCLE, 4 CYCLES R-COP
     Route: 065
     Dates: start: 202108, end: 202111
  13. VINCRISTINE [Suspect]
     Active Substance: VINCRISTINE
     Dosage: UNK UNK, 6 CYCLES OF R-COP CYCLE
     Route: 065
  14. PREDNISONE [Suspect]
     Active Substance: PREDNISONE
     Indication: Diffuse large B-cell lymphoma
     Dosage: UNK UNK, CYCLE, 6 CYCLES OF R-COP
     Route: 065
  15. PREDNISONE [Suspect]
     Active Substance: PREDNISONE
     Indication: Splenic marginal zone lymphoma stage IV
     Dosage: UNK UNK, CYCLE, 4 CYCLES R-COP
     Route: 065
     Dates: start: 202108, end: 202111
  16. PREDNISONE [Suspect]
     Active Substance: PREDNISONE
     Dosage: UNK
     Route: 065
     Dates: start: 201905
  17. CYCLOPHOSPHAMIDE [Suspect]
     Active Substance: CYCLOPHOSPHAMIDE
     Indication: Diffuse large B-cell lymphoma
     Dosage: UNK UNK, CYCLE, 6 CYCLES OF R-COP
     Route: 065
  18. CYCLOPHOSPHAMIDE [Suspect]
     Active Substance: CYCLOPHOSPHAMIDE
     Dosage: UNK UNK, CYCLE, 4 CYCLES R-COP
     Route: 065
     Dates: start: 202108, end: 202111
  19. CYCLOPHOSPHAMIDE [Suspect]
     Active Substance: CYCLOPHOSPHAMIDE
     Dosage: UNK UNK, CYCLE, 2 CYCLES OF RCD
     Route: 065
     Dates: start: 202105
  20. DEXAMETHASONE [Suspect]
     Active Substance: DEXAMETHASONE
     Indication: Diffuse large B-cell lymphoma
     Dosage: UNK UNK, CYCLE, 6 CYCLES OF RGD
     Route: 065
  21. DEXAMETHASONE [Suspect]
     Active Substance: DEXAMETHASONE
     Indication: Splenic marginal zone lymphoma stage IV
     Dosage: UNK UNK, CYCLE, 2 CYCLES OF RCD
     Route: 065
     Dates: start: 202105
  22. TAFASITAMAB [Concomitant]
     Active Substance: TAFASITAMAB
     Indication: Diffuse large B-cell lymphoma
     Dosage: UNK
     Route: 065
     Dates: start: 202211
  23. TAFASITAMAB [Concomitant]
     Active Substance: TAFASITAMAB
     Dosage: UNK
     Route: 065
     Dates: start: 202303

REACTIONS (5)
  - Thrombocytopenia [Recovered/Resolved]
  - Neutropenia [Unknown]
  - COVID-19 [Unknown]
  - Disease progression [Unknown]
  - Product use issue [Unknown]
